FAERS Safety Report 15839536 (Version 1)
Quarter: 2019Q1

REPORT INFORMATION
  Report Type: Spontaneous
  Country: US (occurrence: US)
  Receive Date: 20190117
  Receipt Date: 20190117
  Transmission Date: 20190417
  Serious: No
  Sender: FDA-Public Use
  Company Number: US-TEVA-2018-US-991210

PATIENT
  Sex: Female

DRUGS (1)
  1. ALENDRONATE SODIUM. [Suspect]
     Active Substance: ALENDRONATE SODIUM
     Indication: OSTEOPOROSIS
     Dosage: FORM STRENGTH: 70, UNIT NOT PROVIDED
     Route: 065

REACTIONS (2)
  - Product dose omission [Unknown]
  - Diarrhoea [Unknown]

NARRATIVE: CASE EVENT DATE: 20181218
